FAERS Safety Report 16861501 (Version 1)
Quarter: 2019Q3

REPORT INFORMATION
  Report Type: Spontaneous
  Country: US (occurrence: US)
  Receive Date: 20190927
  Receipt Date: 20190927
  Transmission Date: 20191005
  Serious: No
  Sender: FDA-Public Use
  Company Number: US-009507513-1909USA001765

PATIENT
  Age: 37 Year
  Sex: Female

DRUGS (2)
  1. FOLLISTIM [Suspect]
     Active Substance: FOLLITROPIN
     Indication: CONTROLLED OVARIAN STIMULATION
     Dosage: TOTAL 2400 IU
  2. MENOTROPINS [Concomitant]
     Active Substance: MENOTROPINS
     Indication: CONTROLLED OVARIAN STIMULATION
     Dosage: TOTAL 1200 IU

REACTIONS (1)
  - Maternal exposure before pregnancy [Recovered/Resolved]
